FAERS Safety Report 6979151-3 (Version None)
Quarter: 2010Q3

REPORT INFORMATION
  Report Type: 
  Country: None (occurrence: None)
  Receive Date: 20100908
  Receipt Date: 20100824
  Transmission Date: 20110219
  Serious: Yes (Hospitalization)
  Sender: FDA-Public Use
  Company Number: KV200800326

PATIENT
  Age: 74 Year
  Sex: Female
  Weight: 68 kg

DRUGS (15)
  1. MORPHINE SULFATE [Suspect]
     Indication: BACK PAIN
     Dosage: 15 MG, TID, ORAL; ORAL; 15 MG, BID, ORAL
     Route: 048
     Dates: start: 20080831, end: 20080916
  2. MORPHINE SULFATE [Suspect]
     Indication: BACK PAIN
     Dosage: 15 MG, TID, ORAL; ORAL; 15 MG, BID, ORAL
     Route: 048
     Dates: start: 20080901, end: 20081001
  3. MORPHINE SULFATE [Suspect]
     Indication: BACK PAIN
     Dosage: 15 MG, TID, ORAL; ORAL; 15 MG, BID, ORAL
     Route: 048
     Dates: start: 20081002, end: 20081002
  4. MORPHINE SULFATE [Suspect]
     Indication: BACK PAIN
     Dosage: 30 MG, TID, ORAL
     Route: 048
     Dates: start: 20080916, end: 20080916
  5. XANAX [Concomitant]
  6. LYRICA [Concomitant]
  7. LIDODERM [Concomitant]
  8. NIFEDIPINE [Concomitant]
  9. STOOL SOFTENER (DOCUSATE SODIUM) [Concomitant]
  10. MILK OF MAGNESIA TAB [Concomitant]
  11. VICODIN [Concomitant]
  12. SENOKOT /00142201/ (SENNA ALEXANDRINA) [Concomitant]
  13. MIRALAX [Concomitant]
  14. VASOTEC /00574902/ (ENALAPRIL MALEATE) [Concomitant]
  15. PERCOCET [Concomitant]

REACTIONS (22)
  - ABDOMINAL PAIN [None]
  - ANXIETY [None]
  - ARTHRALGIA [None]
  - BACK PAIN [None]
  - COLD SWEAT [None]
  - CONSTIPATION [None]
  - DISORIENTATION [None]
  - DRUG WITHDRAWAL SYNDROME [None]
  - GAIT DISTURBANCE [None]
  - HYPERHIDROSIS [None]
  - HYPERTENSION [None]
  - INITIAL INSOMNIA [None]
  - INSOMNIA [None]
  - MALAISE [None]
  - NAUSEA [None]
  - PALLOR [None]
  - POOR QUALITY SLEEP [None]
  - PRODUCT QUALITY ISSUE [None]
  - PYREXIA [None]
  - TREATMENT NONCOMPLIANCE [None]
  - VOMITING [None]
  - WOUND SECRETION [None]
